FAERS Safety Report 7456526-X (Version None)
Quarter: 2011Q2

REPORT INFORMATION
  Report Type: 
  Country: None (occurrence: None)
  Receive Date: 20110503
  Receipt Date: 20110427
  Transmission Date: 20111010
  Serious: Yes (Life-Threatening, Hospitalization, Other)
  Sender: FDA-Public Use
  Company Number: JP-PFIZER INC-2010170864

PATIENT
  Age: 60 Year
  Sex: Female
  Weight: 52 kg

DRUGS (3)
  1. ZITHROMAX [Suspect]
     Indication: UPPER RESPIRATORY TRACT INFECTION
     Dosage: 2 G, DAILY
     Route: 048
     Dates: start: 20101201, end: 20101201
  2. FLOMOX [Suspect]
     Indication: PYREXIA
     Dosage: 100 MG, 3X/DAY
     Route: 048
     Dates: start: 20101207, end: 20101209
  3. LOXONIN [Concomitant]
     Dosage: 60 MG, DAILY
     Route: 048
     Dates: start: 20101101

REACTIONS (2)
  - AGRANULOCYTOSIS [None]
  - PNEUMONIA [None]
